FAERS Safety Report 9627187 (Version 2)
Quarter: 2013Q4

REPORT INFORMATION
  Report Type: Report from Study
  Country: JP (occurrence: JP)
  Receive Date: 20131016
  Receipt Date: 20131016
  Transmission Date: 20140711
  Serious: Yes (Hospitalization)
  Sender: FDA-Public Use
  Company Number: JP-TAKEDA-TCI2012A06372

PATIENT
  Age: 49 Year
  Sex: Female
  Weight: 51 kg

DRUGS (11)
  1. LANSOPRAZOLE [Suspect]
     Indication: PROPHYLAXIS AGAINST GASTROINTESTINAL ULCER
     Dosage: 15 MG, QD
     Route: 048
     Dates: start: 20120906
  2. HYPEN                              /00613801/ [Concomitant]
     Indication: SERONEGATIVE ARTHRITIS
     Route: 048
  3. HYPEN                              /00613801/ [Concomitant]
     Indication: SERONEGATIVE ARTHRITIS
     Route: 048
  4. AZULFIDINE EN [Concomitant]
     Indication: SERONEGATIVE ARTHRITIS
     Route: 048
  5. AZULFIDINE EN [Concomitant]
     Indication: SERONEGATIVE ARTHRITIS
     Route: 048
  6. RHEUMATREX                         /00113801/ [Concomitant]
     Indication: SERONEGATIVE ARTHRITIS
     Route: 048
  7. RHEUMATREX                         /00113801/ [Concomitant]
     Indication: SERONEGATIVE ARTHRITIS
     Route: 048
  8. PREDNISOLONE [Concomitant]
     Indication: SERONEGATIVE ARTHRITIS
     Route: 048
  9. PREDNISOLONE [Concomitant]
     Indication: SERONEGATIVE ARTHRITIS
     Route: 048
  10. MOHRUS [Concomitant]
     Indication: SERONEGATIVE ARTHRITIS
     Route: 062
  11. MOHRUS [Concomitant]
     Indication: SERONEGATIVE ARTHRITIS
     Route: 062

REACTIONS (2)
  - Renal injury [Recovering/Resolving]
  - Road traffic accident [Recovered/Resolved]
